FAERS Safety Report 8520374-X (Version None)
Quarter: 2012Q3

REPORT INFORMATION
  Report Type: 
  Country: None (occurrence: None)
  Receive Date: 20120713
  Receipt Date: 20120713
  Transmission Date: 20120928
  Serious: Yes (Hospitalization)
  Sender: FDA-Public Use
  Company Number: None

PATIENT
  Age: 62 Year
  Sex: Male
  Weight: 66.5 kg

DRUGS (4)
  1. CYCLOPHOSPHAMIDE [Suspect]
     Indication: LARYNGEAL CANCER
     Dosage: 1340 MG ONCE IV
     Route: 042
     Dates: start: 20120306, end: 20120306
  2. CYCLOPHOSPHAMIDE [Suspect]
     Indication: B-CELL LYMPHOMA
     Dosage: 1340 MG ONCE IV
     Route: 042
     Dates: start: 20120306, end: 20120306
  3. VINCRISTINE [Suspect]
     Indication: B-CELL LYMPHOMA
     Dosage: 2 MG ONCE IV
     Route: 042
     Dates: start: 20120306, end: 20120306
  4. VINCRISTINE [Suspect]
     Indication: LARYNGEAL CANCER
     Dosage: 2 MG ONCE IV
     Route: 042
     Dates: start: 20120306, end: 20120306

REACTIONS (2)
  - NAUSEA [None]
  - VOMITING [None]
